FAERS Safety Report 10407870 (Version 2)
Quarter: 2015Q2

REPORT INFORMATION
  Report Type: Spontaneous
  Country: IT (occurrence: IT)
  Receive Date: 20140825
  Receipt Date: 20150513
  Transmission Date: 20150821
  Serious: Yes (Hospitalization, Other)
  Sender: FDA-Public Use
  Company Number: IT-PFIZER INC-2014236338

PATIENT
  Age: 53 Year
  Sex: Female

DRUGS (4)
  1. SERTRALINE HCL [Suspect]
     Active Substance: SERTRALINE HYDROCHLORIDE
     Dosage: 18 DF, IN THE EVENING
     Route: 048
     Dates: start: 20131009, end: 20131009
  2. SERTRALINE HCL [Suspect]
     Active Substance: SERTRALINE HYDROCHLORIDE
     Dosage: 18 DF, IN THE MORNING
     Route: 048
     Dates: start: 20131010, end: 20131010
  3. EN [Suspect]
     Active Substance: DELORAZEPAM
     Dosage: UNK, IN THE EVENING
     Route: 048
     Dates: start: 20131009, end: 20131009
  4. EN [Suspect]
     Active Substance: DELORAZEPAM
     Dosage: UNK, IN THE MORNING
     Route: 048
     Dates: start: 20131010, end: 20131010

REACTIONS (5)
  - Drug abuse [Unknown]
  - Intentional self-injury [Recovering/Resolving]
  - Sopor [Recovering/Resolving]
  - Intentional overdose [Unknown]
  - Dysarthria [Recovering/Resolving]

NARRATIVE: CASE EVENT DATE: 201310
